FAERS Safety Report 8209390-5 (Version None)
Quarter: 2012Q1

REPORT INFORMATION
  Report Type: 
  Country: None (occurrence: None)
  Receive Date: 20120314
  Receipt Date: 20120307
  Transmission Date: 20120608
  Serious: Yes (Other)
  Sender: FDA-Public Use
  Company Number: US-BAYER-2012-022735

PATIENT
  Age: 40 Year
  Sex: Female

DRUGS (1)
  1. YAZ [Suspect]
     Indication: PRODUCT USED FOR UNKNOWN INDICATION
     Dosage: UNK
     Dates: start: 20080601, end: 20090901

REACTIONS (7)
  - PULMONARY EMBOLISM [None]
  - ANXIETY [None]
  - FEAR [None]
  - PSYCHOLOGICAL TRAUMA [None]
  - ANHEDONIA [None]
  - PAIN [None]
  - INJURY [None]
